FAERS Safety Report 5286387-9 (Version None)
Quarter: 2007Q1

REPORT INFORMATION
  Report Type: 
  Country: None (occurrence: None)
  Receive Date: 20070329
  Receipt Date: 20070316
  Transmission Date: 20070707
  Serious: Yes (Death)
  Sender: FDA-Public Use
  Company Number: 062-C5013-06060203

PATIENT
  Age: 75 Year
  Sex: Male

DRUGS (2)
  1. CC-5013 (LENALIDOMIDE) (CAPSULES) [Suspect]
     Indication: MULTIPLE MYELOMA
     Dosage: 25 MG, ORAL
     Route: 048
     Dates: start: 20050910, end: 20050919
  2. DEXAMETHASONE TAB [Suspect]
     Indication: MULTIPLE MYELOMA
     Dosage: 40 MG, DAYS 1-4 AND 9-12

REACTIONS (4)
  - CANDIDA SEPSIS [None]
  - HAEMOGLOBIN DECREASED [None]
  - PLATELET COUNT DECREASED [None]
  - RENAL FAILURE [None]
